FAERS Safety Report 11648057 (Version 1)
Quarter: 2015Q4

REPORT INFORMATION
  Report Type: Spontaneous
  Country: US (occurrence: None)
  Receive Date: 20151020
  Receipt Date: 20151020
  Transmission Date: 20160304
  Serious: Yes (Hospitalization)
  Sender: FDA-Public Use
  Company Number: None

PATIENT
  Age: 71 Year
  Sex: Male
  Weight: 88 kg

DRUGS (7)
  1. VELCADE [Concomitant]
     Active Substance: BORTEZOMIB
  2. DEXAMETHASONE. [Concomitant]
     Active Substance: DEXAMETHASONE
  3. AVODART [Concomitant]
     Active Substance: DUTASTERIDE
     Dates: start: 20151007, end: 20151007
  4. REMICADE [Concomitant]
     Active Substance: INFLIXIMAB
  5. AVODART [Concomitant]
     Active Substance: DUTASTERIDE
  6. ZOMETA [Suspect]
     Active Substance: ZOLEDRONIC ACID
     Indication: OSTEOPOROSIS
     Dates: start: 20151007, end: 20151007
  7. ASPIRIN 325MG COATED 416 [Concomitant]
     Active Substance: ASPIRIN

REACTIONS (2)
  - Hiccups [None]
  - Sleep disorder [None]

NARRATIVE: CASE EVENT DATE: 20151007
